FAERS Safety Report 17980345 (Version 8)
Quarter: 2022Q3

REPORT INFORMATION
  Report Type: Spontaneous
  Country: JP (occurrence: JP)
  Receive Date: 20200703
  Receipt Date: 20220719
  Transmission Date: 20221027
  Serious: Yes (Hospitalization)
  Sender: FDA-Public Use
  Company Number: JP-ONO-2020JP015280

PATIENT
  Age: 82 Year
  Sex: Male
  Weight: 48 kg

DRUGS (19)
  1. PARSABIV [Suspect]
     Active Substance: ETELCALCETIDE HYDROCHLORIDE
     Indication: Hyperparathyroidism secondary
     Dosage: 5.0 MG, Q56H
     Route: 010
     Dates: start: 20191015, end: 20210909
  2. PARSABIV [Suspect]
     Active Substance: ETELCALCETIDE HYDROCHLORIDE
     Dosage: 2.5 MG, Q56H
     Route: 010
     Dates: start: 20210911
  3. ROCALTROL [Concomitant]
     Active Substance: CALCITRIOL
     Dosage: 1.5 UG, QW
     Route: 051
     Dates: end: 20200312
  4. ROCALTROL [Concomitant]
     Active Substance: CALCITRIOL
     Dosage: 1 MUG, QW
     Route: 051
     Dates: start: 20210422
  5. MIRCERA [Concomitant]
     Active Substance: METHOXY POLYETHYLENE GLYCOL-EPOETIN BETA
     Dosage: 50 UG, Q4W
     Route: 051
     Dates: end: 20210605
  6. MIRCERA [Concomitant]
     Active Substance: METHOXY POLYETHYLENE GLYCOL-EPOETIN BETA
     Dosage: 25 UG, Q4W
     Route: 051
     Dates: start: 20210703, end: 20210828
  7. MIRCERA [Concomitant]
     Active Substance: METHOXY POLYETHYLENE GLYCOL-EPOETIN BETA
     Dosage: 50 UG, Q4W
     Route: 051
     Dates: start: 20210911, end: 20220604
  8. MIRCERA [Concomitant]
     Active Substance: METHOXY POLYETHYLENE GLYCOL-EPOETIN BETA
     Dosage: 25 UG, Q4W
     Dates: start: 20220702, end: 20220702
  9. OXAROL [Concomitant]
     Active Substance: MAXACALCITOL
     Dosage: 5 UG, Q56H
     Route: 042
     Dates: start: 20200314, end: 20210420
  10. IRON SUCROSE [Concomitant]
     Active Substance: IRON SUCROSE
     Dosage: 40 MILLIGRAM, QWK
     Route: 042
     Dates: start: 20200314
  11. IRON SUCROSE [Concomitant]
     Active Substance: IRON SUCROSE
     Dosage: 40 MILLIGRAM, QWK
     Route: 042
     Dates: start: 20210410, end: 20210703
  12. IRON SUCROSE [Concomitant]
     Active Substance: IRON SUCROSE
     Dosage: 40 MILLIGRAM, QWK
     Route: 042
     Dates: start: 20220312, end: 20220604
  13. IRON SUCROSE [Concomitant]
     Active Substance: IRON SUCROSE
     Dosage: 40 MILLIGRAM, QWK
     Route: 042
     Dates: start: 20200314, end: 20200606
  14. IRON SUCROSE [Concomitant]
     Active Substance: IRON SUCROSE
     Dosage: 40 MILLIGRAM, QWK
     Dates: start: 20210410, end: 20210703
  15. IRON SUCROSE [Concomitant]
     Active Substance: IRON SUCROSE
     Dosage: 40 MILLIGRAM, QWK
     Dates: start: 20220312, end: 20220604
  16. IRON SUCROSE [Concomitant]
     Active Substance: IRON SUCROSE
     Dosage: 40 MILLIGRAM, QWK
     Route: 042
     Dates: start: 20200314, end: 20200606
  17. IRON SUCROSE [Concomitant]
     Active Substance: IRON SUCROSE
     Dosage: 40 MILLIGRAM, QWK
     Dates: start: 20210410, end: 20210703
  18. IRON SUCROSE [Concomitant]
     Active Substance: IRON SUCROSE
     Dosage: 40 MILLIGRAM, QWK
     Dates: start: 20220312, end: 20220604
  19. FOSRENOL [Concomitant]
     Active Substance: LANTHANUM CARBONATE
     Dosage: 750 MG, EVERYDAY
     Route: 048
     Dates: start: 20200910, end: 20210706

REACTIONS (11)
  - Shunt stenosis [Recovering/Resolving]
  - Shunt stenosis [Recovering/Resolving]
  - Shunt stenosis [Recovering/Resolving]
  - Shunt stenosis [Recovering/Resolving]
  - Shunt stenosis [Recovering/Resolving]
  - Shunt stenosis [Recovering/Resolving]
  - Shunt stenosis [Recovering/Resolving]
  - Shunt stenosis [Recovering/Resolving]
  - Shunt stenosis [Recovering/Resolving]
  - Shunt stenosis [Recovering/Resolving]
  - Shunt stenosis [Recovering/Resolving]

NARRATIVE: CASE EVENT DATE: 20200109
